FAERS Safety Report 24651450 (Version 2)
Quarter: 2025Q4

REPORT INFORMATION
  Report Type: Spontaneous
  Country: US (occurrence: US)
  Receive Date: 20241122
  Receipt Date: 20251119
  Transmission Date: 20260117
  Serious: No
  Sender: ALVOGEN
  Company Number: US-ALVOGEN-2024093209

PATIENT
  Sex: Female

DRUGS (1)
  1. TERIPARATIDE [Suspect]
     Active Substance: TERIPARATIDE
     Indication: Osteoporotic fracture
     Dosage: STRENGTH: 250 MCG/ML
     Route: 058
     Dates: start: 202306

REACTIONS (2)
  - Injection site bruising [Unknown]
  - Product dose omission issue [Unknown]
